FAERS Safety Report 4285316-4 (Version None)
Quarter: 2004Q1

REPORT INFORMATION
  Report Type: 
  Country: None (occurrence: None)
  Receive Date: 20040202
  Receipt Date: 20040127
  Transmission Date: 20041129
  Serious: Yes (Hospitalization)
  Sender: FDA-Public Use
  Company Number: 2004196371JP

PATIENT
  Age: 62 Year
  Sex: Female

DRUGS (3)
  1. CABERGOLINE [Suspect]
     Indication: PARKINSON'S DISEASE
     Dosage: SEE IMAGE
     Route: 048
     Dates: start: 20030101
  2. PERGOLIDE MESYLATE [Concomitant]
  3. MENESIT [Concomitant]

REACTIONS (1)
  - MUSCULAR WEAKNESS [None]
